FAERS Safety Report 4814796-8 (Version None)
Quarter: 2005Q4

REPORT INFORMATION
  Report Type: 
  Country: None (occurrence: None)
  Receive Date: 20051028
  Receipt Date: 20041230
  Transmission Date: 20060501
  Serious: Yes (Other)
  Sender: FDA-Public Use
  Company Number: US-GLAXOSMITHKLINE-A0538839A

PATIENT
  Age: 52 Year
  Sex: Female

DRUGS (11)
  1. ADVAIR DISKUS 100/50 [Suspect]
     Indication: ASTHMA
     Route: 055
  2. ATENOLOL [Concomitant]
  3. HYDROCODONE [Concomitant]
  4. LORAZEPAM [Concomitant]
  5. PREDNISONE [Concomitant]
  6. METHOCARBAMOL [Concomitant]
  7. BACTRIM [Concomitant]
  8. ALLEGRA [Concomitant]
  9. NASONEX [Concomitant]
  10. ALBUTEROL [Concomitant]
  11. UNKNOWN MEDICATION [Concomitant]

REACTIONS (6)
  - ASTHMA [None]
  - COUGH [None]
  - DRUG INEFFECTIVE [None]
  - DYSPNOEA [None]
  - MIDDLE INSOMNIA [None]
  - PHARMACEUTICAL PRODUCT COMPLAINT [None]
